FAERS Safety Report 6442983-4 (Version None)
Quarter: 2009Q4

REPORT INFORMATION
  Report Type: 
  Country: None (occurrence: None)
  Receive Date: 20091117
  Receipt Date: 20091110
  Transmission Date: 20100525
  Serious: Yes (Other)
  Sender: FDA-Public Use
  Company Number: US-ASTRAZENECA-2009SE25679

PATIENT
  Age: 56 Year
  Sex: Female
  Weight: 93.4 kg

DRUGS (11)
  1. CRESTOR [Suspect]
     Indication: BLOOD CHOLESTEROL
     Route: 048
     Dates: start: 20091028
  2. SAVELLA [Concomitant]
     Indication: ASTHENIA
  3. METFORMIN HCL [Concomitant]
  4. ACTOS [Concomitant]
  5. ALTACE [Concomitant]
  6. TRAMADOL HCL [Concomitant]
  7. ROBAXIN [Concomitant]
  8. NEXIUM [Concomitant]
  9. ZYRTEC [Concomitant]
  10. CYLAPRIL [Concomitant]
  11. VITAMINS [Concomitant]

REACTIONS (7)
  - CONSTIPATION [None]
  - DIZZINESS [None]
  - HEADACHE [None]
  - MYALGIA [None]
  - NAUSEA [None]
  - SKIN CANCER [None]
  - URINARY TRACT INFECTION [None]
